FAERS Safety Report 12360055 (Version 2)
Quarter: 2016Q2

REPORT INFORMATION
  Report Type: Spontaneous
  Country: CN (occurrence: CN)
  Receive Date: 20160512
  Receipt Date: 20160517
  Transmission Date: 20160815
  Serious: No
  Sender: FDA-Public Use
  Company Number: CN-009507513-1512CHN010146

PATIENT
  Age: 51 Year
  Sex: Male
  Weight: 52 kg

DRUGS (26)
  1. NA JIA MEI GAI PU TAO TANG ZHU SHE YE [Concomitant]
     Indication: FLUID REPLACEMENT
     Dosage: 500 ML, QD
     Route: 041
     Dates: start: 20151201, end: 20151206
  2. PYRIDOXINE [Concomitant]
     Active Substance: PYRIDOXINE
     Indication: INFUSION
     Dosage: 0.2 G, QD
     Route: 041
     Dates: start: 20151128, end: 20151201
  3. PYRIDOXINE [Concomitant]
     Active Substance: PYRIDOXINE
     Indication: FLUID REPLACEMENT
  4. DEXAMETHASONE. [Concomitant]
     Active Substance: DEXAMETHASONE
     Dosage: 10 MG, QD
     Route: 042
     Dates: start: 20151202, end: 20151203
  5. PHENERGAN [Concomitant]
     Active Substance: PROMETHAZINE HYDROCHLORIDE
     Indication: PROPHYLAXIS OF NAUSEA AND VOMITING
     Dosage: 10 MG, ONCE
     Route: 042
     Dates: start: 20151130, end: 20151201
  6. NA JIA MEI GAI PU TAO TANG ZHU SHE YE [Concomitant]
     Dosage: 500 ML, QD
     Route: 041
     Dates: start: 20151208, end: 20151211
  7. TROPISETRON [Concomitant]
     Active Substance: TROPISETRON
     Indication: PROPHYLAXIS OF NAUSEA AND VOMITING
     Dosage: 100 ML, BID
     Route: 041
     Dates: start: 20151128
  8. PACLITAXEL. [Concomitant]
     Active Substance: PACLITAXEL
     Indication: CHEMOTHERAPY
     Dosage: 240 MG D1 TREATMENT CYCLE: 1/UNK
     Route: 041
     Dates: start: 20151130, end: 20151130
  9. EMEND [Suspect]
     Active Substance: APREPITANT
     Indication: PROPHYLAXIS OF NAUSEA AND VOMITING
     Dosage: 125 MG, ONCE (DAY 1)
     Route: 048
     Dates: start: 20151201, end: 20151201
  10. INDOMETHACIN. [Concomitant]
     Active Substance: INDOMETHACIN
     Indication: ANALGESIC THERAPY
     Dosage: 25 MG, QD
     Route: 048
     Dates: start: 20151128
  11. GLYCERIN. [Concomitant]
     Active Substance: GLYCERIN
     Indication: INTESTINAL OBSTRUCTION
     Dosage: TOTAL DAILY DOSE: 40 ML/CC, ONCE, STRENGTH: 20 (UNITS UNKNOWN)
     Route: 054
     Dates: start: 20151129, end: 20151129
  12. NA JIA MEI GAI PU TAO TANG ZHU SHE YE [Concomitant]
     Indication: INFUSION
     Dosage: 500 ML/CC, QD
     Route: 041
     Dates: start: 20151130
  13. SPIRONOLACTONE. [Concomitant]
     Active Substance: SPIRONOLACTONE
     Indication: POLYURIA
     Dosage: 20 MG, QD
     Route: 048
     Dates: start: 20151128
  14. DEXAMETHASONE. [Concomitant]
     Active Substance: DEXAMETHASONE
     Indication: PROPHYLAXIS OF NAUSEA AND VOMITING
     Dosage: 10 MG, ONCE
     Route: 042
     Dates: start: 20151130, end: 20151130
  15. DEXAMETHASONE. [Concomitant]
     Active Substance: DEXAMETHASONE
     Indication: PROPHYLAXIS OF NAUSEA AND VOMITING
     Dosage: 10 MG, BID
     Route: 041
     Dates: start: 20151201, end: 20151201
  16. VITAMIN C [Concomitant]
     Active Substance: ASCORBIC ACID
     Indication: INFUSION
     Dosage: 1 G, QD
     Route: 041
     Dates: start: 20151128, end: 20151201
  17. POTASSIUM CHLORIDE. [Concomitant]
     Active Substance: POTASSIUM CHLORIDE
     Indication: INFUSION
     Dosage: 10 ML, QD
     Route: 041
     Dates: start: 20151128
  18. PANTOLOC [Concomitant]
     Active Substance: PANTOPRAZOLE SODIUM
     Indication: PROPHYLAXIS
     Dosage: 40 MG, BID
     Route: 041
     Dates: start: 20151128
  19. EMEND [Suspect]
     Active Substance: APREPITANT
     Dosage: 80 MG, QD (DAY 2, DAY 3)
     Route: 048
     Dates: start: 20151202, end: 20151203
  20. ACETAMINOPHEN (+) TRAMADOL HYDROCHLORIDE [Concomitant]
     Active Substance: ACETAMINOPHEN\TRAMADOL HYDROCHLORIDE
     Indication: ANALGESIC THERAPY
     Dosage: TOTAL DAILY DOSE: 362.5 MG, ONCE
     Route: 048
     Dates: start: 20151129, end: 20151129
  21. PHENERGAN [Concomitant]
     Active Substance: PROMETHAZINE HYDROCHLORIDE
     Indication: ANTIALLERGIC THERAPY
     Dosage: 25 MG, QD
     Route: 030
     Dates: start: 20151130
  22. FUROSEMIDE. [Concomitant]
     Active Substance: FUROSEMIDE
     Indication: POLYURIA
     Dosage: 10 MG, ONCE
     Route: 042
     Dates: start: 20151201, end: 20151201
  23. FLURBIPROFEN AXETIL [Concomitant]
     Active Substance: FLURBIPROFEN AXETIL
     Indication: ANALGESIC THERAPY
     Dosage: 50 MG, ONCE
     Route: 042
     Dates: start: 20151129, end: 20151129
  24. GLYCERIN. [Concomitant]
     Active Substance: GLYCERIN
     Dosage: 40 ML/CC, QD
     Route: 054
     Dates: start: 20151201, end: 20151202
  25. VITAMIN C [Concomitant]
     Active Substance: ASCORBIC ACID
     Indication: FLUID REPLACEMENT
  26. CISPLATIN. [Concomitant]
     Active Substance: CISPLATIN
     Indication: CHEMOTHERAPY
     Dosage: 180 MG D2 TREATMENT CYCLE: 1/UNK
     Route: 041
     Dates: start: 20151201, end: 20151201

REACTIONS (5)
  - Blood creatinine increased [Recovering/Resolving]
  - Red blood cell count decreased [Recovered/Resolved]
  - White blood cell count decreased [Recovered/Resolved]
  - Blood urea increased [Recovering/Resolving]
  - Hiccups [Recovered/Resolved]

NARRATIVE: CASE EVENT DATE: 20151201
